FAERS Safety Report 23821781 (Version 1)
Quarter: 2024Q2

REPORT INFORMATION
  Report Type: Spontaneous
  Country: IE (occurrence: IE)
  Receive Date: 20240506
  Receipt Date: 20240506
  Transmission Date: 20240715
  Serious: Yes (Other)
  Sender: FDA-Public Use
  Company Number: None

PATIENT
  Age: 43 Year
  Sex: Female

DRUGS (4)
  1. ONDANSETRON [Suspect]
     Active Substance: ONDANSETRON
     Indication: Oocyte harvest
     Dosage: 4 ML (MILLILITRE) AT AN UNSPECIFIED FREQUENCY, (DOSAGE TEXT: STANDARD DOSE EXP 10/26)
     Route: 042
     Dates: start: 20240327, end: 20240327
  2. MORPHINE [Suspect]
     Active Substance: MORPHINE
     Indication: Oocyte harvest
     Dosage: (MORPHINE (G)), 5 ML (MILLILITRES) AT AN UNSPECIFIED FREQUENCY, (DOSAGE TEXT: STANDARD DOSE EXP 04/2
     Route: 042
     Dates: start: 20240327, end: 20240327
  3. MORPHINE [Suspect]
     Active Substance: MORPHINE
     Dosage: 0.2 ML (MILLILITRES) AT AN UNSPECIFIED FREQUENCY, (DOSAGE TEXT: EXP 04/25)
     Route: 042
     Dates: start: 20240327, end: 20240327
  4. MIDAZOLAM [Suspect]
     Active Substance: MIDAZOLAM
     Indication: Oocyte harvest
     Dosage: (HYPNOVEL 10 MG/2 ML SOLUTION FOR INJECTION), 6 ML (MILLILITRE) AT AN UNSPECIFIED FREQUENCY, (DOSAGE
     Route: 042
     Dates: start: 20240327, end: 20240327

REACTIONS (5)
  - Hypertension [Recovered/Resolved]
  - Tachycardia [Recovered/Resolved]
  - Discomfort [Recovered/Resolved]
  - Pain [Recovered/Resolved]
  - Atrial fibrillation [Recovered/Resolved]

NARRATIVE: CASE EVENT DATE: 20240327
